FAERS Safety Report 18629892 (Version 1)
Quarter: 2020Q4

REPORT INFORMATION
  Report Type: Spontaneous
  Country: US (occurrence: US)
  Receive Date: 20201217
  Receipt Date: 20201217
  Transmission Date: 20210114
  Serious: No
  Sender: FDA-Public Use
  Company Number: US-SCILEX PHARMACEUTICALS INC.-2020SCX00037

PATIENT
  Sex: Female
  Weight: 85.26 kg

DRUGS (5)
  1. ZTLIDO [Suspect]
     Active Substance: LIDOCAINE
     Dosage: 1.8%, 1X/DAY; 12 HOURS ON AND OFF; NOT AS FREQUENTLY
     Route: 061
  2. GARLIC. [Concomitant]
     Active Substance: GARLIC
     Dosage: UNK
  3. ZTLIDO [Suspect]
     Active Substance: LIDOCAINE
     Indication: ARTHRITIS
     Dosage: 1.8 %, 3X/DAY
     Route: 061
     Dates: start: 2019
  4. HIGH BLOOD PRESSURE MEDICATION [Concomitant]
     Active Substance: UNSPECIFIED INGREDIENT
  5. DICLOFENAC [Concomitant]
     Active Substance: DICLOFENAC

REACTIONS (4)
  - Pruritus [Recovered/Resolved]
  - Product quality issue [Recovered/Resolved]
  - Dermatitis contact [Recovered/Resolved]
  - Rash [Recovering/Resolving]

NARRATIVE: CASE EVENT DATE: 2020
